FAERS Safety Report 14076485 (Version 3)
Quarter: 2018Q1

REPORT INFORMATION
  Report Type: Report from Study
  Country: US (occurrence: US)
  Receive Date: 20171011
  Receipt Date: 20180102
  Transmission Date: 20180508
  Serious: Yes (Hospitalization)
  Sender: FDA-Public Use
  Company Number: US-ACTELION-A-US2017-160637

PATIENT
  Age: 83 Year
  Sex: Male

DRUGS (1)
  1. TRACLEER [Suspect]
     Active Substance: BOSENTAN
     Indication: PULMONARY ARTERIAL HYPERTENSION
     Dosage: 125 MG, BID
     Route: 048
     Dates: start: 20160903, end: 20171130

REACTIONS (6)
  - Spinal column injury [Unknown]
  - Rib fracture [Unknown]
  - Pneumonia [Unknown]
  - Spinal fracture [Unknown]
  - Pneumothorax [Unknown]
  - Wheelchair user [Unknown]

NARRATIVE: CASE EVENT DATE: 20170919
